FAERS Safety Report 21232411 (Version 1)
Quarter: 2022Q3

REPORT INFORMATION
  Report Type: Spontaneous
  Country: CA (occurrence: CA)
  Receive Date: 20220819
  Receipt Date: 20220819
  Transmission Date: 20221027
  Serious: Yes (Other)
  Sender: FDA-Public Use
  Company Number: CA-SANOFI-01233611

PATIENT
  Sex: Female

DRUGS (1)
  1. PRALUENT [Suspect]
     Active Substance: ALIROCUMAB
     Indication: Hyperlipidaemia
     Dates: start: 20220804

REACTIONS (2)
  - Chest discomfort [Unknown]
  - Limb discomfort [Unknown]

NARRATIVE: CASE EVENT DATE: 20220801
